FAERS Safety Report 14912083 (Version 2)
Quarter: 2018Q3

REPORT INFORMATION
  Report Type: Spontaneous
  Country: US (occurrence: US)
  Receive Date: 20180518
  Receipt Date: 20180731
  Transmission Date: 20181010
  Serious: No
  Sender: FDA-Public Use
  Company Number: US-PFIZER INC-2018091149

PATIENT
  Age: 49 Year
  Sex: Female

DRUGS (6)
  1. 5?FLUOROURACIL /00098801/ [Concomitant]
     Active Substance: FLUOROURACIL
     Indication: CHEMOTHERAPY
     Dosage: UNK
  2. NEOSAR [Concomitant]
     Active Substance: CYCLOPHOSPHAMIDE
     Indication: CHEMOTHERAPY
     Dosage: UNK
  3. DOCETAXEL. [Suspect]
     Active Substance: DOCETAXEL
     Indication: BREAST CANCER
     Dosage: 75 MG/100 MG/M2, CYCLIC (EVERY THREE WEEKS)
     Dates: start: 20120105
  4. ELLENCE [Concomitant]
     Active Substance: EPIRUBICIN HYDROCHLORIDE
     Indication: CHEMOTHERAPY
     Dosage: UNK
  5. TAXOTERE [Suspect]
     Active Substance: DOCETAXEL
     Indication: BREAST CANCER
     Dosage: 75 MG/100 MG/M2, CYCLIC (EVERY THREE WEEKS)
     Dates: start: 20120105
  6. FLONASE /00908302/ [Concomitant]
     Active Substance: MOMETASONE FUROATE
     Dosage: UNK
     Dates: start: 2006

REACTIONS (9)
  - Hair texture abnormal [Unknown]
  - Hair colour changes [Unknown]
  - Stress [Unknown]
  - Hair disorder [Unknown]
  - Neoplasm progression [Unknown]
  - Alopecia [Unknown]
  - Anxiety [Unknown]
  - Madarosis [Unknown]
  - Depression [Unknown]

NARRATIVE: CASE EVENT DATE: 2012
